FAERS Safety Report 6051251-4 (Version None)
Quarter: 2009Q1

REPORT INFORMATION
  Report Type: 
  Country: None (occurrence: None)
  Receive Date: 20090126
  Receipt Date: 20090119
  Transmission Date: 20090719
  Serious: Yes (Hospitalization)
  Sender: FDA-Public Use
  Company Number: US-BIOGENIDEC-2008BI029239

PATIENT
  Age: 39 Year
  Sex: Female

DRUGS (4)
  1. AVONEX [Suspect]
     Indication: MULTIPLE SCLEROSIS
     Route: 030
     Dates: start: 19960318, end: 20021001
  2. AVONEX [Suspect]
     Route: 030
     Dates: start: 20030601
  3. AVONEX [Suspect]
     Route: 030
     Dates: start: 20031001
  4. AVONEX [Suspect]
     Route: 030
     Dates: start: 20060714

REACTIONS (3)
  - MULTIPLE SCLEROSIS [None]
  - MULTIPLE SCLEROSIS RELAPSE [None]
  - MUSCULAR WEAKNESS [None]
